FAERS Safety Report 8997711 (Version 1)
Quarter: 2013Q1

REPORT INFORMATION
  Report Type: Report from Study
  Country: CA (occurrence: CA)
  Receive Date: 20130104
  Receipt Date: 20130104
  Transmission Date: 20140127
  Serious: Yes (Death)
  Sender: FDA-Public Use
  Company Number: CA-ROCHE-1176683

PATIENT
  Age: 66 Year
  Sex: Male

DRUGS (2)
  1. PEG-INTERFERON ALFA 2A [Suspect]
     Indication: HEPATITIS C
     Dosage: ON 17/SEP/2012: DRUG WAS FIRST DISPENSED TO THE PATIENT
     Route: 065
  2. RIBAVIRIN [Suspect]
     Indication: HEPATITIS C
     Dosage: ON 17/SEP/2012: DRUG WAS FIRST DISPENSED TO THE PATIENT
     Route: 065

REACTIONS (1)
  - Death [Fatal]
